FAERS Safety Report 9083847 (Version 1)
Quarter: 2013Q1

REPORT INFORMATION
  Report Type: Spontaneous
  Country: US (occurrence: US)
  Receive Date: 20130130
  Receipt Date: 20130130
  Transmission Date: 20140127
  Serious: No
  Sender: FDA-Public Use
  Company Number: US-ABBOTT-12P-163-0967774-00

PATIENT
  Age: 20 None
  Sex: Male
  Weight: 67.65 kg

DRUGS (7)
  1. HUMIRA 40 MG/0.8 ML PEN [Suspect]
     Indication: CROHN^S DISEASE
     Dates: start: 20120712, end: 20120712
  2. HUMIRA 40 MG/0.8 ML PEN [Suspect]
     Dates: start: 20120726, end: 20120726
  3. HUMIRA 40 MG/0.8 ML PEN [Suspect]
     Dates: start: 20120809
  4. IMURAN [Concomitant]
     Indication: CROHN^S DISEASE
  5. VITAMIN D [Concomitant]
     Indication: VITAMIN SUPPLEMENTATION
  6. MULTIVITAMINS [Concomitant]
     Indication: VITAMIN SUPPLEMENTATION
  7. PREDNISONE [Concomitant]
     Indication: CROHN^S DISEASE

REACTIONS (6)
  - Vomiting [Recovered/Resolved]
  - Fatigue [Recovered/Resolved]
  - C-reactive protein increased [Not Recovered/Not Resolved]
  - Abdominal pain upper [Not Recovered/Not Resolved]
  - Nausea [Recovered/Resolved]
  - Drug ineffective [Not Recovered/Not Resolved]
